FAERS Safety Report 13339522 (Version 13)
Quarter: 2020Q1

REPORT INFORMATION
  Report Type: Report from Study
  Country: US (occurrence: US)
  Receive Date: 20170315
  Receipt Date: 20200326
  Transmission Date: 20200409
  Serious: Yes (Hospitalization, Other)
  Sender: FDA-Public Use
  Company Number: US-ACTELION-A-US2017-151021

PATIENT
  Age: 42 Year
  Sex: Female
  Weight: 61.22 kg

DRUGS (8)
  1. OPSUMIT [Suspect]
     Active Substance: MACITENTAN
     Indication: PULMONARY ARTERIAL HYPERTENSION
     Dosage: 10 MG, QD
     Route: 048
  2. SILDENAFIL CITRATE. [Concomitant]
     Active Substance: SILDENAFIL CITRATE
  3. OPSUMIT [Suspect]
     Active Substance: MACITENTAN
     Dosage: 10 MG, QD
     Route: 048
  4. UPTRAVI [Suspect]
     Active Substance: SELEXIPAG
     Dosage: 1400 MCG, BID
     Route: 048
  5. MIRENA [Concomitant]
     Active Substance: LEVONORGESTREL
  6. UPTRAVI [Suspect]
     Active Substance: SELEXIPAG
     Indication: PULMONARY ARTERIAL HYPERTENSION
     Dosage: 1600 MCG, BID
     Route: 048
  7. UPTRAVI [Suspect]
     Active Substance: SELEXIPAG
     Dosage: 1200 MCG, BID
     Route: 048
  8. ADCIRCA [Concomitant]
     Active Substance: TADALAFIL

REACTIONS (39)
  - Kidney infection [Unknown]
  - Pain in extremity [Unknown]
  - Pain [Unknown]
  - Extrasystoles [Not Recovered/Not Resolved]
  - Unresponsive to stimuli [Recovered/Resolved]
  - Dyspnoea [Unknown]
  - Nausea [Unknown]
  - Adverse event [Unknown]
  - Chest discomfort [Unknown]
  - Syncope [Recovered/Resolved]
  - Dizziness [Unknown]
  - Chest pain [Unknown]
  - Heart rate increased [Unknown]
  - Nasopharyngitis [Unknown]
  - Eating disorder [Unknown]
  - Viral infection [Unknown]
  - Urinary tract infection [Unknown]
  - Cough [Unknown]
  - Product dose omission [Unknown]
  - Chills [Unknown]
  - Blood urine present [Unknown]
  - Hypotension [Unknown]
  - Somnolence [Unknown]
  - Condition aggravated [Unknown]
  - Feeling abnormal [Unknown]
  - Myalgia [Unknown]
  - Migraine [Unknown]
  - Back pain [Unknown]
  - Headache [Unknown]
  - Malaise [Unknown]
  - Loss of consciousness [Unknown]
  - Oedema peripheral [Unknown]
  - Muscular weakness [Unknown]
  - Speech disorder [Unknown]
  - Vomiting [Unknown]
  - Hot flush [Unknown]
  - Tachycardia [Unknown]
  - Pulmonary arterial pressure increased [Recovering/Resolving]
  - Dyspnoea exertional [Unknown]

NARRATIVE: CASE EVENT DATE: 20170504
